FAERS Safety Report 17930792 (Version 3)
Quarter: 2020Q3

REPORT INFORMATION
  Report Type: Spontaneous
  Country: US (occurrence: US)
  Receive Date: 20200623
  Receipt Date: 20200902
  Transmission Date: 20201103
  Serious: No
  Sender: FDA-Public Use
  Company Number: US-VERTEX PHARMACEUTICALS-2020-012898

PATIENT
  Age: 56 Year
  Sex: Female

DRUGS (3)
  1. TRIKAFTA [Suspect]
     Active Substance: ELEXACAFTOR\IVACAFTOR\TEZACAFTOR
     Indication: CYSTIC FIBROSIS
     Dosage: 2 TABS (100MG ELEXA/50MG TEZA/75MG IVA AND 150 MG IVA) AM, BID
     Route: 048
     Dates: start: 20200616
  2. TACROLIMUS. [Concomitant]
     Active Substance: TACROLIMUS
  3. INSULIN [Concomitant]
     Active Substance: INSULIN NOS
     Indication: DIABETES MELLITUS

REACTIONS (6)
  - Nasal congestion [Unknown]
  - Paranasal sinus hypersecretion [Recovered/Resolved]
  - Pruritus [Not Recovered/Not Resolved]
  - Rhinorrhoea [Unknown]
  - Eyelids pruritus [Recovered/Resolved]
  - Abdominal discomfort [Unknown]

NARRATIVE: CASE EVENT DATE: 202006
